FAERS Safety Report 8832425 (Version 2)
Quarter: 2013Q1

REPORT INFORMATION
  Report Type: Spontaneous
  Country: US (occurrence: None)
  Receive Date: 20121005
  Receipt Date: 20121109
  Transmission Date: 20140127
  Serious: Yes (Life-Threatening, Hospitalization, Other)
  Sender: FDA-Public Use
  Company Number: US-2012-11437

PATIENT
  Age: 52 Year
  Sex: Male

DRUGS (1)
  1. OPC-41061 [Suspect]
     Route: 048
     Dates: start: 20100729, end: 20120919

REACTIONS (5)
  - Atrial fibrillation [None]
  - Atrial thrombosis [None]
  - Aortic disorder [None]
  - Road traffic accident [None]
  - Aortic dilatation [None]
